FAERS Safety Report 8251085-6 (Version None)
Quarter: 2012Q2

REPORT INFORMATION
  Report Type: 
  Country: None (occurrence: None)
  Receive Date: 20120402
  Receipt Date: 20120326
  Transmission Date: 20120825
  Serious: Yes (Hospitalization, Other)
  Sender: FDA-Public Use
  Company Number: US-ABBOTT-12P-163-0909525-00

PATIENT
  Sex: Male
  Weight: 115.32 kg

DRUGS (3)
  1. DIOVAN HCT [Concomitant]
     Indication: HYPERTENSION
  2. HUMIRA [Suspect]
     Indication: CROHN'S DISEASE
     Dates: start: 20080101, end: 20101001
  3. HUMIRA [Suspect]
     Dates: start: 20120210

REACTIONS (2)
  - ENTEROVESICAL FISTULA [None]
  - CROHN'S DISEASE [None]
